FAERS Safety Report 9245009 (Version 1)
Quarter: 2013Q1

REPORT INFORMATION
  Report Type: Spontaneous
  Country: US (occurrence: None)
  Receive Date: 20121130
  Receipt Date: 20121130
  Transmission Date: 20140127
  Serious: Yes (Other)
  Sender: FDA-Public Use
  Company Number: PHEH2011US08433

PATIENT
  Age: 73 Year
  Sex: Female

DRUGS (1)
  1. VOLTAREN-XR [Suspect]
     Route: 048

REACTIONS (2)
  - Renal injury [None]
  - Renal impairment [None]
